FAERS Safety Report 6133923-6 (Version None)
Quarter: 2009Q1

REPORT INFORMATION
  Report Type: 
  Country: None (occurrence: None)
  Receive Date: 20090326
  Receipt Date: 20090316
  Transmission Date: 20090719
  Serious: Yes (Other)
  Sender: FDA-Public Use
  Company Number: US-ELI_LILLY_AND_COMPANY-US200902003823

PATIENT
  Age: 49 Year
  Sex: Female
  Weight: 47.619 kg

DRUGS (11)
  1. CYMBALTA [Suspect]
     Indication: DEPRESSION
     Dosage: 30 MG, DAILY (1/D)
     Dates: start: 20070701, end: 20071001
  2. CYMBALTA [Suspect]
     Dosage: 30 MG, 2/D
  3. DEPAKOTE [Concomitant]
     Indication: CONVULSION
  4. PROTONIX [Concomitant]
     Indication: GASTROOESOPHAGEAL REFLUX DISEASE
  5. HUMIRA [Concomitant]
     Indication: CROHN'S DISEASE
  6. LOMOTIL [Concomitant]
     Indication: DIARRHOEA
  7. LEVSIN [Concomitant]
     Indication: IRRITABLE BOWEL SYNDROME
  8. BONIVA [Concomitant]
     Indication: OSTEOPOROSIS
  9. ACYCLOVIR [Concomitant]
     Indication: HERPES SIMPLEX
     Dosage: UNK, AS NEEDED
  10. TRAMADOL HCL [Concomitant]
     Indication: ABDOMINAL PAIN
     Dosage: UNK, AS NEEDED
  11. DELTALIN [Concomitant]
     Indication: VITAMIN D DEFICIENCY

REACTIONS (5)
  - ALANINE AMINOTRANSFERASE INCREASED [None]
  - ASPARTATE AMINOTRANSFERASE INCREASED [None]
  - BLOOD ALBUMIN DECREASED [None]
  - BLOOD ALKALINE PHOSPHATASE INCREASED [None]
  - HEPATIC ENZYME INCREASED [None]
